FAERS Safety Report 17283508 (Version 2)
Quarter: 2020Q1

REPORT INFORMATION
  Report Type: Report from Study
  Country: JP (occurrence: JP)
  Receive Date: 20200117
  Receipt Date: 20200330
  Transmission Date: 20200409
  Serious: Yes (Hospitalization)
  Sender: FDA-Public Use
  Company Number: JP-ACTELION-A-CH2018-177934

PATIENT
  Age: 52 Year
  Sex: Female

DRUGS (11)
  1. TRACLEER [Suspect]
     Active Substance: BOSENTAN
     Dosage: 62.5 MG, QD
     Route: 048
     Dates: start: 20180717, end: 20190329
  2. NEXIUM [Concomitant]
     Active Substance: ESOMEPRAZOLE MAGNESIUM
  3. TRACLEER [Suspect]
     Active Substance: BOSENTAN
     Indication: SCLERODERMA ASSOCIATED DIGITAL ULCER
     Dosage: 125 MG, QD
     Route: 048
     Dates: start: 20180303, end: 20180406
  4. CELECOX [Concomitant]
     Active Substance: CELECOXIB
  5. TRACLEER [Suspect]
     Active Substance: BOSENTAN
     Dosage: 62.5 MG, BID
     Route: 048
     Dates: start: 20180502, end: 20180717
  6. JUVELA N [Concomitant]
     Active Substance: TOCOPHERYL NICOTINATE, D-.ALPHA.
  7. TRACLEER [Suspect]
     Active Substance: BOSENTAN
     Dosage: 62.5 MG, QD
     Route: 048
     Dates: start: 20180407, end: 20180501
  8. PREDNISOLONE. [Concomitant]
     Active Substance: PREDNISOLONE
     Indication: INTERSTITIAL LUNG DISEASE
     Dosage: 40 MG, QD
  9. TRACLEER [Suspect]
     Active Substance: BOSENTAN
     Dosage: 62.5 MG, QD
     Route: 048
     Dates: start: 20180203, end: 20180302
  10. ANPLAG [Concomitant]
     Active Substance: SARPOGRELATE
  11. BONALON [Concomitant]
     Active Substance: ALENDRONATE SODIUM

REACTIONS (9)
  - Asthma [Unknown]
  - Anaemia [Unknown]
  - Lung opacity [Unknown]
  - Cough [Unknown]
  - Wheezing [Unknown]
  - Gastrooesophageal reflux disease [Recovered/Resolved]
  - Interstitial lung disease [Unknown]
  - Condition aggravated [Recovered/Resolved]
  - Dyspepsia [Recovered/Resolved]

NARRATIVE: CASE EVENT DATE: 20180406
